FAERS Safety Report 5921566-6 (Version None)
Quarter: 2008Q4

REPORT INFORMATION
  Report Type: 
  Country: None (occurrence: None)
  Receive Date: 20081010
  Receipt Date: 20080925
  Transmission Date: 20090506
  Serious: Yes (Death)
  Sender: FDA-Public Use
  Company Number: GAM-167-08-FR

PATIENT
  Age: 58 Year
  Sex: Male

DRUGS (8)
  1. OCTAGAM [Suspect]
     Indication: ALLERGENIC DESENSITISATION PROCEDURE
     Dosage: 2000 MG/KG
     Route: 042
     Dates: start: 20080923, end: 20080923
  2. CELLCEPT [Concomitant]
  3. PREDNISONE TAB [Concomitant]
  4. PRAVASTATIN [Concomitant]
  5. LASIX [Concomitant]
  6. MABTHERA (RITUXIMAB) [Concomitant]
  7. PLAVIX [Concomitant]
  8. PROGRAF [Concomitant]

REACTIONS (4)
  - CARDIAC ARREST [None]
  - EYE ROLLING [None]
  - LOSS OF CONSCIOUSNESS [None]
  - VOMITING [None]
